FAERS Safety Report 7008254-2 (Version None)
Quarter: 2010Q3

REPORT INFORMATION
  Report Type: 
  Country: None (occurrence: None)
  Receive Date: 20100922
  Receipt Date: 20100916
  Transmission Date: 20110219
  Serious: Yes (Death, Hospitalization)
  Sender: FDA-Public Use
  Company Number: A0747135A

PATIENT
  Age: 73 Year
  Sex: Female
  Weight: 81.8 kg

DRUGS (1)
  1. AVANDIA [Suspect]
     Dates: start: 20060123, end: 20060722

REACTIONS (4)
  - CARDIAC FAILURE CONGESTIVE [None]
  - CEREBROVASCULAR ACCIDENT [None]
  - LIP SWELLING [None]
  - MYOCARDIAL INFARCTION [None]
